FAERS Safety Report 9212854 (Version 1)
Quarter: 2013Q1

REPORT INFORMATION
  Report Type: Spontaneous
  Country: US (occurrence: None)
  Receive Date: 20120820
  Receipt Date: 20120820
  Transmission Date: 20140127
  Serious: No
  Sender: FDA-Public Use
  Company Number: 1000031486

PATIENT
  Age: 66 Year
  Sex: Male

DRUGS (4)
  1. VIIBRYD [Suspect]
     Indication: DEPRESSION
     Route: 048
     Dates: start: 20120611, end: 20120617
  2. VIIBRYD [Suspect]
     Indication: DEPRESSION
     Route: 048
     Dates: start: 20120618, end: 20120624
  3. FLOMAX(TAMSULOSIN)(TAMSULOSIN) [Concomitant]
  4. LISINOPRIL(LISINOPRIL)(LISINOPRIL) [Concomitant]

REACTIONS (3)
  - Diarrhoea [None]
  - Nausea [None]
  - Weight decreased [None]
